FAERS Safety Report 9985156 (Version 2)
Quarter: 2014Q2

REPORT INFORMATION
  Report Type: Spontaneous
  Country: US (occurrence: US)
  Receive Date: 20140307
  Receipt Date: 20140602
  Transmission Date: 20141212
  Serious: Yes (Hospitalization)
  Sender: FDA-Public Use
  Company Number: US-ACTELION-A-NJ2014-95625

PATIENT
  Age: 62 Year
  Sex: Female

DRUGS (1)
  1. VELETRI [Suspect]
     Indication: PULMONARY ARTERIAL HYPERTENSION
     Dosage: 97 NG/KG, PER MIN
     Route: 042
     Dates: start: 20110711

REACTIONS (4)
  - Cardiac disorder [Unknown]
  - Device occlusion [Recovered/Resolved]
  - Device failure [Recovered/Resolved]
  - Device alarm issue [Recovered/Resolved]
